FAERS Safety Report 8839387 (Version 1)
Quarter: 2012Q4

REPORT INFORMATION
  Report Type: Spontaneous
  Country: US (occurrence: None)
  Receive Date: 20121011
  Receipt Date: 20121011
  Transmission Date: 20130627
  Serious: No
  Sender: FDA-Public Use
  Company Number: None

PATIENT
  Age: 62 Year
  Sex: Female
  Weight: 72.58 kg

DRUGS (1)
  1. VALTREX [Suspect]
     Indication: HERPES NOS
     Route: 048
     Dates: start: 20121001, end: 20121001

REACTIONS (1)
  - Atrial fibrillation [None]
